FAERS Safety Report 8080811-4 (Version None)
Quarter: 2012Q1

REPORT INFORMATION
  Report Type: 
  Country: None (occurrence: None)
  Receive Date: 20120130
  Receipt Date: 20120119
  Transmission Date: 20120608
  Serious: Yes (Hospitalization)
  Sender: FDA-Public Use
  Company Number: US-BRISTOL-MYERS SQUIBB COMPANY-16360703

PATIENT
  Age: 64 Year
  Sex: Male

DRUGS (24)
  1. MAGNESIUM SULFATE [Concomitant]
     Route: 042
  2. METOCLOPRAMIDE [Concomitant]
     Route: 042
  3. IPILIMUMAB [Suspect]
     Indication: PROSTATE CANCER
     Dosage: ALSO ON 20SEP11,18OCT11,15NOV11
     Route: 042
     Dates: start: 20110824
  4. HUMULIN R [Concomitant]
     Route: 058
  5. ZOLPIDEM TARTRATE [Concomitant]
     Dosage: 1 DF=HSPRN
     Route: 048
  6. DEXTROSE [Concomitant]
     Dosage: DOSAGE-UD
     Route: 042
  7. PANTOPRAZOLE SODIUM [Concomitant]
     Route: 048
  8. VALSARTAN [Concomitant]
     Route: 048
  9. VANCOMYCIN HCL [Concomitant]
     Route: 042
  10. ALBUMIN (HUMAN) [Concomitant]
     Route: 042
  11. ENOXAPARIN [Concomitant]
     Route: 058
  12. MORPHINE [Concomitant]
     Dosage: 1 DF=2,1MG
     Route: 042
  13. SODIUM CHLORIDE [Concomitant]
     Dosage: 1 DF=10,1000ML.DOSAGE=Q16H,Q3HPRN,Q6HPM
     Route: 042
  14. ACETAMINOPHEN [Concomitant]
     Route: 048
  15. ACETAMINOPHEN AND HYDROCODONE BITARTRATE [Concomitant]
     Dosage: 1 DF=2,1TAB
     Route: 048
  16. ASPIRIN [Concomitant]
     Route: 048
  17. SENNA-MINT WAF [Concomitant]
     Dosage: 1 DF=2TAB
     Route: 048
  18. SIMVASTATIN [Concomitant]
     Route: 048
  19. DIPHENHYDRAMINE HCL [Concomitant]
     Route: 042
  20. IOHEXOL [Concomitant]
     Route: 048
  21. PIPERACILLIN AND TAZOBACTAM [Concomitant]
     Route: 042
  22. GLIMEPIRIDE [Concomitant]
     Route: 048
  23. IPRATROPIUM BROMIDE [Concomitant]
     Dosage: DOSAGE-RTMED
     Route: 055
  24. MULTIPLE VITAMINS [Concomitant]
     Dosage: 1 DF= 1TAB
     Route: 048

REACTIONS (5)
  - PAIN IN EXTREMITY [None]
  - GENERALISED OEDEMA [None]
  - DYSPNOEA [None]
  - OEDEMA PERIPHERAL [None]
  - RENAL FAILURE [None]
